FAERS Safety Report 18523448 (Version 1)
Quarter: 2020Q4

REPORT INFORMATION
  Report Type: Spontaneous
  Country: NO (occurrence: NO)
  Receive Date: 20201119
  Receipt Date: 20201119
  Transmission Date: 20210114
  Serious: Yes (Disabling)
  Sender: FDA-Public Use
  Company Number: NO-TEVA-2020-NO-1849599

PATIENT
  Age: 22 Year
  Sex: Female

DRUGS (15)
  1. PINEX FORTE [Suspect]
     Active Substance: ACETAMINOPHEN\CODEINE PHOSPHATE
     Indication: PAIN
     Dosage: 1-2 TABLETS AGAINT HEAVY PAIN, 1 DOSAGE FORMS?FOR ACTIVE INGREDIENT CODEINE THE STRENGTH IS 30 MILLI
     Route: 048
  2. LAKTULOSE ORIFARM [Suspect]
     Active Substance: LACTULOSE
     Dosage: 30 ML DAILY; 15 ML MORNING AND EVENING - UNKNOWN START / END DATE (NOT IN USE NOW)
     Route: 048
  3. TRIMETOPRIM [Suspect]
     Active Substance: TRIMETHOPRIM
     Indication: URINARY TRACT INFECTION
     Dosage: 2 DOSAGE FORMS DAILY; 1 + 0 + 1 + 0 (UNKNOWN START / END DATE - NOT IN USE NOW))
     Route: 048
  4. PARACET [Suspect]
     Active Substance: ACETAMINOPHEN
     Indication: PAIN
     Dosage: 1 TABLET AS REQUIRED UP TO 3 TIMES A DAY, 1 DOSAGE FORMS
     Route: 048
  5. FUCIDIN [Suspect]
     Active Substance: FUSIDATE SODIUM
     Dosage: APPLY 2-3 TIMES DAILY (UNKNOWN START / END DATE - NOT IN USE NOW), 1 DOSAGE FORMS
     Route: 003
  6. SELEXID (PIVMECILLINAM HYDROCHLORIDE) [Suspect]
     Active Substance: PIVMECILLINAM HYDROCHLORIDE
     Indication: URINARY TRACT INFECTION
     Dosage: 3 DOSAGE FORMS DAILY; 1 + 1 + 1 + 0 - UNKNOWN WHEN SHE TOOK THE CURE, NOT IN USE NOW.
     Route: 048
  7. VIMOVO [Suspect]
     Active Substance: ESOMEPRAZOLE MAGNESIUM\NAPROXEN
     Indication: PAIN
     Dosage: 2 DOSAGE FORMS DAILY; 1+0+1+0?FOR ACTIVE INGREDIENT ESOMEPRAZOLE THE STRENGTH IS 20 MILLIGRAM .?FOR
     Route: 048
  8. LAMISIL [Suspect]
     Active Substance: TERBINAFINE HYDROCHLORIDE
     Indication: FUNGAL INFECTION
     Dosage: APPLY IN A THIN LAYER TWICE DAILY FOR 2-3 WEEKS (UNKNOWN START / END DATE - NOT IN USE NOW)
  9. PROTOPIC [Suspect]
     Active Substance: TACROLIMUS
     Indication: ECZEMA
     Dosage: APPLY IN A THIN LAYER X 2, 1 DOSAGE FORMS
     Route: 061
  10. HIPREX [Suspect]
     Active Substance: METHENAMINE HIPPURATE
     Indication: PROPHYLAXIS URINARY TRACT INFECTION
     Dosage: 2 DOSAGE FORMS DAILY; 1+0+1+0
  11. SAROTEX [Suspect]
     Active Substance: AMITRIPTYLINE HYDROCHLORIDE
     Indication: PAIN
     Dosage: 10 MILLIEQUIVALENTS DAILY; 0+0+1+0
     Route: 048
  12. VOLTAREN [Suspect]
     Active Substance: DICLOFENAC SODIUM
     Indication: PAIN
     Dosage: 1 X 3 (UNKNOWN START / END DATE - NOT IN USE NOW), 1 DOSAGE FORMS
     Route: 048
  13. LAXOBERAL [Suspect]
     Active Substance: SODIUM PICOSULFATE
     Dosage: 10-20 DROPS (UNKNOWN START / END DATE - NOT IN USE NOW), 10 DOSAGE FORMS
     Route: 048
  14. KETORAX [Suspect]
     Active Substance: KETOBEMIDONE HYDROCHLORIDE
     Indication: PAIN
     Dosage: 1 TABLET EVERY 4-5 HOURS (UNKNOWN START / END DATE - NOT IN USE NOW)
  15. TRAMADOL ACTAVIS [Suspect]
     Active Substance: TRAMADOL
     Indication: PAIN
     Dosage: 1 TABLET AS REQUIRED UP TO 3 TIMES A DAY, 1 DOSAGE FORMS
     Route: 048

REACTIONS (1)
  - Haematoma [Not Recovered/Not Resolved]
